FAERS Safety Report 5911320-3 (Version None)
Quarter: 2008Q4

REPORT INFORMATION
  Report Type: 
  Country: None (occurrence: None)
  Receive Date: 20081007
  Receipt Date: 20081003
  Transmission Date: 20090506
  Serious: Yes (Life-Threatening, Hospitalization)
  Sender: FDA-Public Use
  Company Number: DK-B.I. PHARMACEUTICALS,INC./RIDGEFIELD-2008-SW-00266DB

PATIENT
  Sex: Female

DRUGS (1)
  1. PERSANTIN INJ [Suspect]
     Indication: SCAN MYOCARDIAL PERFUSION
     Dates: start: 20080916, end: 20080916

REACTIONS (1)
  - TRANSIENT ISCHAEMIC ATTACK [None]
